FAERS Safety Report 7579609-2 (Version None)
Quarter: 2011Q2

REPORT INFORMATION
  Report Type: 
  Country: None (occurrence: None)
  Receive Date: 20110629
  Receipt Date: 20110614
  Transmission Date: 20111010
  Serious: Yes (Other)
  Sender: FDA-Public Use
  Company Number: US-BAYER-2011-051319

PATIENT
  Sex: Female

DRUGS (1)
  1. MIRENA [Suspect]
     Indication: CONTRACEPTION
     Dosage: 20 ?G, CONT
     Route: 015

REACTIONS (5)
  - NASOPHARYNGITIS [None]
  - THROAT IRRITATION [None]
  - EAR DISORDER [None]
  - MENSTRUATION DELAYED [None]
  - VAGINAL HAEMORRHAGE [None]
